FAERS Safety Report 21240063 (Version 1)
Quarter: 2022Q3

REPORT INFORMATION
  Report Type: Report from Study
  Country: IN (occurrence: IN)
  Receive Date: 20220822
  Receipt Date: 20220822
  Transmission Date: 20221027
  Serious: Yes (Other)
  Sender: FDA-Public Use
  Company Number: IN-NOVARTISPH-NVSC2022IN155863

PATIENT
  Sex: Female

DRUGS (10)
  1. SECUKINUMAB [Suspect]
     Active Substance: SECUKINUMAB
     Indication: Ankylosing spondylitis
     Dosage: 300 MG, QMO
     Route: 058
     Dates: start: 20220210
  2. SECUKINUMAB [Suspect]
     Active Substance: SECUKINUMAB
     Dosage: 150 MG, QMO
     Route: 058
     Dates: start: 20220706
  3. METHOTREXATE SODIUM [Concomitant]
     Active Substance: METHOTREXATE SODIUM
     Indication: Product used for unknown indication
     Dosage: 1 DOSAGE FORM, QD
     Route: 065
  4. FOLVITE [Concomitant]
     Active Substance: FOLIC ACID
     Indication: Product used for unknown indication
     Dosage: 1 DOSAGE FORM, QD
     Route: 065
  5. NEXPRO-RD [Concomitant]
     Indication: Product used for unknown indication
     Dosage: UNK, QD (40)
     Route: 065
  6. GABAPIN NT [Concomitant]
     Indication: Product used for unknown indication
     Dosage: 1 DOSAGE FORM, QD
     Route: 065
  7. ETOSHINE [Concomitant]
     Indication: Product used for unknown indication
     Dosage: 1 DOSAGE FORM, BID
     Route: 065
  8. STERNON S [Concomitant]
     Indication: Product used for unknown indication
     Dosage: UNK
     Route: 065
  9. SEVISTA [Concomitant]
     Indication: Product used for unknown indication
     Dosage: UNK, QW, (60)
     Route: 065
  10. PROPYSALIC [Concomitant]
     Indication: Product used for unknown indication
     Dosage: UNK
     Route: 065

REACTIONS (14)
  - Psoriatic arthropathy [Unknown]
  - Tooth disorder [Unknown]
  - Enthesopathy [Unknown]
  - Red blood cell sedimentation rate abnormal [Unknown]
  - Arthralgia [Unknown]
  - Muscle spasms [Unknown]
  - Pain [Unknown]
  - Psoriasis [Unknown]
  - Fibroadenoma of breast [Unknown]
  - Iron deficiency anaemia [Unknown]
  - Uterine leiomyoma [Unknown]
  - Osteopenia [Unknown]
  - Hypocalcaemia [Unknown]
  - Spinal disorder [Unknown]
